FAERS Safety Report 6128221-0 (Version None)
Quarter: 2009Q1

REPORT INFORMATION
  Report Type: 
  Country: None (occurrence: None)
  Receive Date: 20090323
  Receipt Date: 20090318
  Transmission Date: 20090719
  Serious: Yes (Death)
  Sender: FDA-Public Use
  Company Number: IN-ELI_LILLY_AND_COMPANY-IN200903004668

PATIENT
  Age: 67 Year
  Sex: Male

DRUGS (3)
  1. XIGRIS [Suspect]
     Indication: SEPSIS
     Dosage: 9 ML, OTHER
     Route: 042
     Dates: start: 20090318
  2. ANTIBIOTICS [Concomitant]
  3. HAEMODIALYTICS AND HAEMOFILTRATES [Concomitant]
     Indication: DIALYSIS

REACTIONS (1)
  - CARDIOGENIC SHOCK [None]
